FAERS Safety Report 4381890-8 (Version None)
Quarter: 2004Q2

REPORT INFORMATION
  Report Type: 
  Country: None (occurrence: None)
  Receive Date: 20040615
  Receipt Date: 20040603
  Transmission Date: 20050107
  Serious: No
  Sender: FDA-Public Use
  Company Number: 04P-056-0261496-00

PATIENT
  Age: 37 Year
  Sex: Female
  Weight: 55 kg

DRUGS (3)
  1. HUMIRA  PRE-FILLED SYRINGE (HUMIRA) (ADALIMUMAB) [Suspect]
     Indication: SPONDYLITIS
     Dosage: 40 MG, 1 IN 15 D, SUBCUTANEOUS
     Route: 058
     Dates: start: 20031118, end: 20040515
  2. NORMENSAL [Concomitant]
  3. METHOTREXATE [Concomitant]

REACTIONS (2)
  - HYPERTENSION [None]
  - WEIGHT INCREASED [None]
